FAERS Safety Report 11109412 (Version 2)
Quarter: 2015Q2

REPORT INFORMATION
  Report Type: Spontaneous
  Country: US (occurrence: US)
  Receive Date: 20150513
  Receipt Date: 20150603
  Transmission Date: 20150821
  Serious: Yes (Other)
  Sender: FDA-Public Use
  Company Number: US-PFIZER INC-2015158566

PATIENT
  Age: 67 Year
  Sex: Male

DRUGS (1)
  1. SUTENT [Suspect]
     Active Substance: SUNITINIB MALATE
     Indication: RENAL CELL CARCINOMA
     Dosage: 50 MG, CYCLIC, (1QD X 14 D ON, 7D OFF)
     Route: 048

REACTIONS (5)
  - Dry skin [Unknown]
  - Dysphagia [Unknown]
  - Rhinorrhoea [Unknown]
  - Dysgeusia [Unknown]
  - Cough [Unknown]

NARRATIVE: CASE EVENT DATE: 20150506
